FAERS Safety Report 8302665-0 (Version None)
Quarter: 2012Q2

REPORT INFORMATION
  Report Type: 
  Country: None (occurrence: None)
  Receive Date: 20120420
  Receipt Date: 20120411
  Transmission Date: 20120825
  Serious: Yes (Hospitalization)
  Sender: FDA-Public Use
  Company Number: NL-MEDIMMUNE-MEDI-0015473

PATIENT
  Sex: Female
  Weight: 2.38 kg

DRUGS (2)
  1. SYNAGIS [Suspect]
     Route: 030
     Dates: start: 20120313, end: 20120410
  2. SYNAGIS [Suspect]
     Indication: PREMATURE BABY
     Route: 030
     Dates: start: 20120101, end: 20120215

REACTIONS (8)
  - GASTROINTESTINAL PAIN [None]
  - POOR QUALITY SLEEP [None]
  - HYPERSOMNIA [None]
  - RESTLESSNESS [None]
  - DYSKINESIA [None]
  - CRYING [None]
  - STRESS [None]
  - FAILURE TO THRIVE [None]
